FAERS Safety Report 4715890-2 (Version None)
Quarter: 2005Q3

REPORT INFORMATION
  Report Type: 
  Country: None (occurrence: None)
  Receive Date: 20050718
  Receipt Date: 20050609
  Transmission Date: 20060218
  Serious: Yes (Life-Threatening, Hospitalization)
  Sender: FDA-Public Use
  Company Number: JP-MERCK-0506USA01502

PATIENT
  Age: 84 Year
  Sex: Female
  Weight: 60 kg

DRUGS (7)
  1. COZAAR [Suspect]
     Indication: HYPERTENSION
     Route: 048
     Dates: start: 20050512, end: 20050514
  2. PONTAL [Suspect]
     Indication: INFLAMMATION
     Route: 048
     Dates: start: 20050512, end: 20050514
  3. NORFLOXACIN [Suspect]
     Indication: INFLAMMATION
     Route: 048
     Dates: start: 20050512, end: 20050514
  4. DIHYDROCODEINE PHOSPHATE [Suspect]
     Indication: INFLAMMATION
     Route: 048
     Dates: start: 20050512, end: 20050514
  5. DIHYDROCODEINE PHOSPHATE [Suspect]
     Indication: COUGH
     Route: 048
     Dates: start: 20050512, end: 20050514
  6. SULFADIMETHOXINE [Suspect]
     Indication: INFLAMMATION
     Route: 042
     Dates: start: 20050512, end: 20050512
  7. DEXTROSE [Concomitant]
     Route: 042
     Dates: start: 20050512, end: 20050512

REACTIONS (1)
  - TOXIC EPIDERMAL NECROLYSIS [None]
